FAERS Safety Report 9862002 (Version 1)
Quarter: 2014Q1

REPORT INFORMATION
  Report Type: Spontaneous
  Country: CA (occurrence: CA)
  Receive Date: 20140203
  Receipt Date: 20140203
  Transmission Date: 20141002
  Serious: Yes (Death, Hospitalization)
  Sender: FDA-Public Use
  Company Number: CA-AMGEN-CANSP2014005592

PATIENT
  Age: 61 Year
  Sex: Male

DRUGS (1)
  1. XGEVA [Suspect]
     Indication: NEOPLASM MALIGNANT
     Dosage: UNK
     Route: 065
     Dates: start: 20131213

REACTIONS (1)
  - Neoplasm malignant [Fatal]
